FAERS Safety Report 17534435 (Version 1)
Quarter: 2020Q1

REPORT INFORMATION
  Report Type: Spontaneous
  Country: ZA (occurrence: ZA)
  Receive Date: 20200312
  Receipt Date: 20200312
  Transmission Date: 20200409
  Serious: Yes (Other)
  Sender: FDA-Public Use
  Company Number: ZA-PFIZER INC-2020107923

PATIENT
  Sex: Male

DRUGS (2)
  1. COLISTIN [Concomitant]
     Active Substance: COLISTIN
  2. TYGACIL [Suspect]
     Active Substance: TIGECYCLINE

REACTIONS (3)
  - Off label use [Unknown]
  - Renal impairment [Unknown]
  - Drug ineffective for unapproved indication [Unknown]
